FAERS Safety Report 8373070-6 (Version None)
Quarter: 2012Q2

REPORT INFORMATION
  Report Type: 
  Country: None (occurrence: None)
  Receive Date: 20120521
  Receipt Date: 20120515
  Transmission Date: 20120825
  Serious: Yes (Other)
  Sender: FDA-Public Use
  Company Number: PHHY2012NL041741

PATIENT
  Sex: Male
  Weight: 74 kg

DRUGS (4)
  1. PHENPROCOUMON [Concomitant]
     Dosage: 3 MG, UNK
     Dates: start: 20020101
  2. EXELON [Suspect]
     Indication: DEMENTIA ALZHEIMER'S TYPE
     Dosage: 4.6 MG/24 HRS
     Route: 062
     Dates: start: 20110915, end: 20120404
  3. LIPITOR [Concomitant]
     Dosage: 10 MG, QD
     Dates: start: 20020101
  4. BISOPROLOL FUMARATE [Concomitant]
     Dosage: 10 MG, QD
     Dates: start: 20020101

REACTIONS (3)
  - PHARYNGEAL ULCERATION [None]
  - SKIN ULCER [None]
  - MOUTH ULCERATION [None]
